FAERS Safety Report 5519489-X (Version None)
Quarter: 2007Q4

REPORT INFORMATION
  Report Type: 
  Country: None (occurrence: None)
  Receive Date: 20071114
  Receipt Date: 20071031
  Transmission Date: 20080405
  Serious: Yes (Life-Threatening, Hospitalization)
  Sender: FDA-Public Use
  Company Number: 100#03#2006-02422

PATIENT
  Age: 43 Year
  Sex: Male

DRUGS (7)
  1. AMLODIPINE [Suspect]
     Indication: DRUG USE FOR UNKNOWN INDICATION
     Dosage: 560 MG (7 MG/KG) ORAL
     Route: 048
  2. CITALOPRAM (CITALOPRAM) (TABLETS) (CITALOPRAM) [Suspect]
     Indication: DRUG USE FOR UNKNOWN INDICATION
     Dosage: 280 (3.5 MG/KG) ORAL
     Route: 048
  3. ACETYLSALICYLIC ACID (ACETYLSALICYLIC ACID) (TABLETS) (ACETYLSALICYLIC [Suspect]
     Indication: DRUG USE FOR UNKNOWN INDICATION
     Dosage: 7.5 G (93.75 MG/KG) ORAL   ONCE
     Route: 048
  4. PARACETAMOL (PARACETAMOL) (TABLETS) (PARACETAMOL) [Suspect]
     Indication: DRUG USE FOR UNKNOWN INDICATION
     Dosage: 16 G (200 MG/KG) ORAL  ONCE
     Route: 048
  5. FLUOXETINE [Suspect]
     Indication: DRUG USE FOR UNKNOWN INDICATION
     Dosage: 600 MG (7.5 MG/KG) ORAL  ONCE
     Route: 048
  6. FOLIC ACID [Suspect]
     Indication: DRUG USE FOR UNKNOWN INDICATION
     Dosage: 30 TABLETS ORAL  ONCE
     Route: 048
  7. PERINDOPRIL (PERIINDOPRIL) (TABLETS) (PERINDOPRIL) [Suspect]
     Indication: DRUG USE FOR UNKNOWN INDICATION
     Dosage: 120 MG (1.5 MG/KG) ORAL   ONCE
     Route: 048

REACTIONS (6)
  - BLOOD POTASSIUM DECREASED [None]
  - CARDIOTOXICITY [None]
  - HYPOTENSION [None]
  - INTENTIONAL OVERDOSE [None]
  - METABOLIC ACIDOSIS [None]
  - URINE OUTPUT DECREASED [None]
